FAERS Safety Report 14745795 (Version 1)
Quarter: 2018Q2

REPORT INFORMATION
  Report Type: Report from Study
  Country: CA (occurrence: CA)
  Receive Date: 20180411
  Receipt Date: 20180411
  Transmission Date: 20180711
  Serious: Yes (Other)
  Sender: FDA-Public Use
  Company Number: CA-GLAXOSMITHKLINE-CA2018GSK059641

PATIENT
  Age: 57 Year
  Sex: Male

DRUGS (2)
  1. MEPOLIZUMAB [Suspect]
     Active Substance: MEPOLIZUMAB
     Indication: ASTHMA
     Dosage: 100 MG, Z (MONTHLY)
     Route: 042
  2. PREDNISONE. [Suspect]
     Active Substance: PREDNISONE
     Indication: PRODUCT USED FOR UNKNOWN INDICATION
     Dosage: UNK

REACTIONS (6)
  - Chest pain [Unknown]
  - Withdrawal syndrome [Unknown]
  - Cardiac disorder [Unknown]
  - Ill-defined disorder [Unknown]
  - Atrial fibrillation [Unknown]
  - Insomnia [Unknown]

NARRATIVE: CASE EVENT DATE: 201711
